FAERS Safety Report 9820519 (Version 1)
Quarter: 2014Q1

REPORT INFORMATION
  Report Type: Spontaneous
  Country: US (occurrence: US)
  Receive Date: 20140116
  Receipt Date: 20140116
  Transmission Date: 20141002
  Serious: Yes (Other)
  Sender: FDA-Public Use
  Company Number: US-PFIZER INC-2014011484

PATIENT
  Age: 78 Year
  Sex: Female
  Weight: 73.02 kg

DRUGS (2)
  1. CELEBREX [Suspect]
     Indication: OSTEOARTHRITIS
     Dosage: 200 MG, 1X/DAY
  2. LEVOXYL [Concomitant]
     Indication: THYROID DISORDER
     Dosage: 116 MG, DAILY

REACTIONS (2)
  - Arthropathy [Unknown]
  - Pain [Unknown]
